FAERS Safety Report 11773422 (Version 1)
Quarter: 2015Q4

REPORT INFORMATION
  Report Type: Spontaneous
  Country: US (occurrence: US)
  Receive Date: 20151124
  Receipt Date: 20151124
  Transmission Date: 20160304
  Serious: No
  Sender: FDA-Public Use
  Company Number: US-BAYER-2015-474928

PATIENT
  Age: 71 Year
  Sex: Female
  Weight: 40.82 kg

DRUGS (2)
  1. CARBIDOPA. [Concomitant]
     Active Substance: CARBIDOPA
  2. ALEVE [Suspect]
     Active Substance: NAPROXEN SODIUM
     Indication: MUSCULOSKELETAL STIFFNESS
     Dosage: 1 DF, UNK
     Route: 048

REACTIONS (2)
  - Product use issue [None]
  - Therapeutic response unexpected [None]
